FAERS Safety Report 11944570 (Version 9)
Quarter: 2016Q3

REPORT INFORMATION
  Report Type: Report from Study
  Country: LB (occurrence: LB)
  Receive Date: 20160125
  Receipt Date: 20160819
  Transmission Date: 20161109
  Serious: Yes (Hospitalization)
  Sender: FDA-Public Use
  Company Number: PHHY2014LB068641

PATIENT
  Age: 25 Year
  Sex: Male
  Weight: 79 kg

DRUGS (3)
  1. TASIGNA [Suspect]
     Active Substance: NILOTINIB
     Dosage: 600 MG, QD
     Route: 048
     Dates: start: 201602
  2. TASIGNA [Suspect]
     Active Substance: NILOTINIB
     Indication: PRODUCT USED FOR UNKNOWN INDICATION
     Dosage: 600 MG, QD
     Route: 048
     Dates: start: 201404, end: 201511
  3. TASIGNA [Suspect]
     Active Substance: NILOTINIB
     Dosage: 600 MG, QD (300 MG AT MORNING AND 300 MG AT EVENING)
     Route: 048

REACTIONS (20)
  - Nephrolithiasis [Recovering/Resolving]
  - Depression [Not Recovered/Not Resolved]
  - Sneezing [Unknown]
  - Dizziness [Not Recovered/Not Resolved]
  - Paraesthesia [Recovered/Resolved]
  - Weight decreased [Not Recovered/Not Resolved]
  - Fatigue [Not Recovered/Not Resolved]
  - Weight increased [Not Recovered/Not Resolved]
  - Tachycardia [Recovered/Resolved]
  - Nausea [Recovered/Resolved]
  - Increased appetite [Unknown]
  - Cytogenetic analysis abnormal [Recovering/Resolving]
  - Influenza [Recovered/Resolved]
  - Tachycardia [Recovered/Resolved]
  - Vision blurred [Recovered/Resolved]
  - Flank pain [Unknown]
  - Vomiting [Unknown]
  - Pyrexia [Recovered/Resolved]
  - Hypersensitivity [Not Recovered/Not Resolved]
  - Hypersomnia [Unknown]

NARRATIVE: CASE EVENT DATE: 2014
